FAERS Safety Report 8737521 (Version 2)
Quarter: 2013Q4

REPORT INFORMATION
  Report Type: Spontaneous
  Country: US (occurrence: US)
  Receive Date: 20120822
  Receipt Date: 20131101
  Transmission Date: 20140711
  Serious: No
  Sender: FDA-Public Use
  Company Number: US-009507513-1207USA007650

PATIENT
  Age: 60 Year
  Sex: Female

DRUGS (4)
  1. DULERA [Suspect]
     Indication: CHRONIC OBSTRUCTIVE PULMONARY DISEASE
     Dosage: 2 DF, BID
     Route: 055
     Dates: start: 20120702
  2. LEVOTHROID [Concomitant]
  3. LISINOPRIL [Concomitant]
  4. PROAIR (ALBUTEROL SULFATE) [Concomitant]

REACTIONS (1)
  - Fatigue [Not Recovered/Not Resolved]
